FAERS Safety Report 5501270-9 (Version None)
Quarter: 2007Q4

REPORT INFORMATION
  Report Type: 
  Country: None (occurrence: None)
  Receive Date: 20071029
  Receipt Date: 20071019
  Transmission Date: 20080405
  Serious: Yes (Other)
  Sender: FDA-Public Use
  Company Number: JP-MERCK-0710USA04529

PATIENT
  Age: 3 Year
  Sex: Male

DRUGS (2)
  1. SINGULAIR [Suspect]
     Route: 048
     Dates: start: 20071012, end: 20071017
  2. EBASTEL [Concomitant]
     Route: 048
     Dates: start: 20071012

REACTIONS (2)
  - AGITATION [None]
  - CONVULSION IN CHILDHOOD [None]
